FAERS Safety Report 4668452-X (Version None)
Quarter: 2005Q2

REPORT INFORMATION
  Report Type: 
  Country: None (occurrence: None)
  Receive Date: 20050523
  Receipt Date: 20050512
  Transmission Date: 20051028
  Serious: Yes (Hospitalization)
  Sender: FDA-Public Use
  Company Number: PHRM2005FR01508

PATIENT
  Age: 77 Year
  Sex: Female

DRUGS (7)
  1. MOPRAL [Concomitant]
     Dosage: 20 MG, QD
     Route: 048
  2. NITRIDERM TTS [Suspect]
     Indication: HYPERTENSION
     Dosage: 1.5 MG, QD
     Route: 064
     Dates: end: 20041117
  3. DIGOXIN [Suspect]
     Route: 048
     Dates: start: 20041027, end: 20041118
  4. LASILIX [Suspect]
     Indication: HYPERTENSION
     Dosage: 40 MG, QD
     Route: 048
     Dates: end: 20041119
  5. KALEORID [Suspect]
     Dosage: 1000 MG, QD
     Route: 048
     Dates: end: 20041116
  6. IKOREL [Suspect]
     Indication: HYPERTENSION
     Dosage: 10 MG, QD
     Route: 048
     Dates: end: 20041119
  7. CORDARONE [Concomitant]

REACTIONS (4)
  - BLOOD BILIRUBIN INCREASED [None]
  - HAEMOGLOBIN DECREASED [None]
  - HAEMOLYTIC ANAEMIA [None]
  - JAUNDICE [None]
